FAERS Safety Report 7801582-X (Version None)
Quarter: 2011Q4

REPORT INFORMATION
  Report Type: 
  Country: None (occurrence: None)
  Receive Date: 20111007
  Receipt Date: 20110926
  Transmission Date: 20120403
  Serious: Yes (Other)
  Sender: FDA-Public Use
  Company Number: ES-RANBAXY-2011RR-48599

PATIENT
  Age: 23 Year
  Sex: Female

DRUGS (7)
  1. BENZOCAINE [Concomitant]
     Indication: PRODUCT USED FOR UNKNOWN INDICATION
     Dosage: UNK
     Route: 065
  2. CHLORHEXIDINE GLUCONATE [Concomitant]
     Indication: PRODUCT USED FOR UNKNOWN INDICATION
     Dosage: UNK
     Route: 065
  3. ACETAMINOPHEN [Suspect]
     Dosage: 1950 MG/DAY
     Route: 065
  4. CARBOCYSTEINE [Concomitant]
     Indication: PRODUCT USED FOR UNKNOWN INDICATION
     Dosage: UNK
     Route: 065
  5. AMBROXOL [Concomitant]
     Indication: PRODUCT USED FOR UNKNOWN INDICATION
     Dosage: UNK
     Route: 065
  6. ACETAMINOPHEN [Suspect]
     Indication: HEADACHE
     Dosage: 500 MG/DAY
     Route: 065
  7. ACETAMINOPHEN [Suspect]
     Indication: PYREXIA
     Dosage: 1950 MG/DAY
     Route: 065

REACTIONS (3)
  - PYREXIA [None]
  - RASH [None]
  - LIVER INJURY [None]
